FAERS Safety Report 5403983-6 (Version None)
Quarter: 2007Q3

REPORT INFORMATION
  Report Type: 
  Country: None (occurrence: None)
  Receive Date: 20070802
  Receipt Date: 20070726
  Transmission Date: 20080115
  Serious: Yes (Hospitalization)
  Sender: FDA-Public Use
  Company Number: B0477411A

PATIENT
  Age: 52 Year
  Sex: Male
  Weight: 67 kg

DRUGS (5)
  1. ZANTAC 150 [Suspect]
     Dosage: 150MG TWICE PER DAY
     Route: 048
     Dates: start: 20070403, end: 20070627
  2. FOIPAN [Concomitant]
     Route: 048
     Dates: start: 20070109
  3. ZYRTEC [Concomitant]
     Indication: URTICARIA
     Dosage: 10MG PER DAY
     Route: 048
     Dates: start: 20070109
  4. MALFA [Concomitant]
     Route: 048
     Dates: start: 20070209
  5. FERRICON [Concomitant]
     Dosage: 1AMP PER DAY
     Route: 042
     Dates: start: 20070426, end: 20070626

REACTIONS (3)
  - APLASTIC ANAEMIA [None]
  - MYELOCYTE PERCENTAGE DECREASED [None]
  - PANCYTOPENIA [None]
